FAERS Safety Report 7267955-1 (Version None)
Quarter: 2011Q1

REPORT INFORMATION
  Report Type: 
  Country: None (occurrence: None)
  Receive Date: 20110120
  Receipt Date: 20110104
  Transmission Date: 20110831
  Serious: Yes (Death)
  Sender: FDA-Public Use
  Company Number: EU-2011-10002

PATIENT
  Age: 58 Year
  Sex: Male

DRUGS (10)
  1. CARBOPLATIN [Concomitant]
  2. TOPOTECAN HYDROCHLORIDE (TOPOTECAN HYDROCHLORIDE) [Concomitant]
  3. SAMSCA [Suspect]
     Indication: INAPPROPRIATE ANTIDIURETIC HORMONE SECRETION
     Dosage: 15 MG MILLIGRAM(S), QD, ORAL, 30 MG MILLIGRAM(S), ORAL
     Route: 048
  4. SODIUM CHLORIDE 0.9% [Concomitant]
  5. SODIUM CHLORIDE 0.9% [Concomitant]
  6. DEMECLOCYCLINE HCL [Concomitant]
  7. VEPESID [Concomitant]
  8. CISPLATIN [Concomitant]
  9. VEPESID [Concomitant]
  10. CELLTOP (ETOPOSIDE) [Concomitant]

REACTIONS (2)
  - CONDITION AGGRAVATED [None]
  - SMALL CELL LUNG CANCER STAGE UNSPECIFIED [None]
